FAERS Safety Report 14281588 (Version 4)
Quarter: 2019Q2

REPORT INFORMATION
  Report Type: Spontaneous
  Country: US (occurrence: US)
  Receive Date: 20171213
  Receipt Date: 20190521
  Transmission Date: 20190711
  Serious: No
  Sender: FDA-Public Use
  Company Number: US-PFIZER INC-2017531167

PATIENT
  Age: 20 Year
  Sex: Female

DRUGS (2)
  1. XELJANZ [Suspect]
     Active Substance: TOFACITINIB CITRATE
     Dosage: 5 MG, UNK
     Dates: start: 20180504
  2. XELJANZ [Suspect]
     Active Substance: TOFACITINIB CITRATE
     Indication: JUVENILE IDIOPATHIC ARTHRITIS
     Dosage: 5 MG, UNK
     Dates: start: 201712

REACTIONS (3)
  - Dizziness [Unknown]
  - Product dose omission [Unknown]
  - Fatigue [Unknown]

NARRATIVE: CASE EVENT DATE: 20171211
